FAERS Safety Report 11716624 (Version 1)
Quarter: 2015Q4

REPORT INFORMATION
  Report Type: Spontaneous
  Country: US (occurrence: US)
  Receive Date: 20151109
  Receipt Date: 20151109
  Transmission Date: 20160304
  Serious: Yes (Death, Life-Threatening, Other)
  Sender: FDA-Public Use
  Company Number: US-BAYER-2015-462496

PATIENT
  Age: 10 Year
  Sex: Female

DRUGS (9)
  1. CEPHALEXIN. [Concomitant]
     Active Substance: CEPHALEXIN
     Indication: PROPHYLAXIS
  2. CIDOFOVIR. [Concomitant]
     Active Substance: CIDOFOVIR
     Indication: BK VIRUS INFECTION
     Dosage: 0.5 MG/KG
     Route: 042
  3. CIDOFOVIR. [Concomitant]
     Active Substance: CIDOFOVIR
     Indication: BK VIRUS INFECTION
     Dosage: 0.5 MG/KG
     Route: 042
  4. CIPROFLOXACIN. [Suspect]
     Active Substance: CIPROFLOXACIN
     Indication: VIRAEMIA
     Dosage: 10 MG/KG, QD
     Route: 042
  5. CIPROFLOXACIN. [Suspect]
     Active Substance: CIPROFLOXACIN
     Indication: VIRAEMIA
     Dosage: 10 MG/KG, QD
     Route: 042
  6. CIPROFLOXACIN. [Suspect]
     Active Substance: CIPROFLOXACIN
     Indication: VIRAEMIA
     Dosage: 10 MG/KG, UNK
     Route: 042
  7. GANCICLOVIR. [Concomitant]
     Active Substance: GANCICLOVIR
     Indication: VIRAEMIA
  8. CIDOFOVIR. [Concomitant]
     Active Substance: CIDOFOVIR
     Indication: BK VIRUS INFECTION
     Dosage: 0.5 MG/KG
     Route: 042
  9. CIDOFOVIR. [Concomitant]
     Active Substance: CIDOFOVIR
     Indication: BK VIRUS INFECTION
     Dosage: 0.5 MG/KG
     Route: 042

REACTIONS (5)
  - Off label use [None]
  - Polyomavirus-associated nephropathy [None]
  - Apnoeic attack [None]
  - Seizure [None]
  - Condition aggravated [Fatal]
